FAERS Safety Report 15413739 (Version 2)
Quarter: 2018Q4

REPORT INFORMATION
  Report Type: Report from Study
  Country: MX (occurrence: MX)
  Receive Date: 20180921
  Receipt Date: 20181004
  Transmission Date: 20190204
  Serious: Yes (Other)
  Sender: FDA-Public Use
  Company Number: PHHY2018MX099878

PATIENT
  Age: 79 Year
  Sex: Female
  Weight: 65 kg

DRUGS (3)
  1. ENTRESTO [Suspect]
     Active Substance: SACUBITRIL\VALSARTAN
     Indication: HYPERTENSION
     Dosage: 100 MG, QD
     Route: 048
  2. ASPIRIN. [Concomitant]
     Active Substance: ASPIRIN
     Indication: PRODUCT USED FOR UNKNOWN INDICATION
     Dosage: 1 DF, QD
     Route: 048
  3. ATARAX [Concomitant]
     Active Substance: HYDROXYZINE HYDROCHLORIDE
     Indication: HYPERTENSION
     Dosage: 0.5 DF, QD (AT NIGHT)
     Route: 065

REACTIONS (7)
  - Feeling abnormal [Recovered/Resolved]
  - Product use in unapproved indication [Unknown]
  - Deafness [Recovered/Resolved]
  - Malaise [Recovered/Resolved]
  - Sciatica [Not Recovered/Not Resolved]
  - Product prescribing error [Not Recovered/Not Resolved]
  - Blood pressure increased [Not Recovered/Not Resolved]

NARRATIVE: CASE EVENT DATE: 20180910
